FAERS Safety Report 9515198 (Version 2)
Quarter: 2014Q1

REPORT INFORMATION
  Report Type: Spontaneous
  Country: US (occurrence: None)
  Receive Date: 20130305
  Receipt Date: 20140306
  Transmission Date: 20141002
  Serious: Yes (Hospitalization, Other)
  Sender: FDA-Public Use
  Company Number: 163-21880-12122686

PATIENT
  Age: 70 Year
  Sex: Male

DRUGS (19)
  1. REVLIMID [Suspect]
     Indication: PLASMA CELL MYELOMA
     Dosage: 15 MG, 21 IN 21 D, PO
     Route: 048
     Dates: start: 20120927
  2. DEXAMETHASONE (DEXAMETHASONE) (UNKNOWN) [Suspect]
     Indication: PLASMA CELL MYELOMA
     Dosage: 20 MG, MON/TUES/THURSDAY
  3. VELCADE (BORTEZOMIB) (UNKNOWN) [Concomitant]
     Indication: PLASMA CELL MYELOMA
     Dates: start: 201211
  4. PRILOSEC (OMEPRAZOLE [Concomitant]
  5. COLCRYS (COLCHICINE) [Concomitant]
  6. GLUCOPHAGE (METFORMIN HYDROCHLORIDE) [Concomitant]
  7. NOVOLIN R (INSULIN HUMAN) [Concomitant]
  8. LOTENSIN (BENAZEPRIL HYDROCHLORIDE) [Concomitant]
  9. LORTAB (VICODIN) [Concomitant]
  10. ZOCOR (SIMVASTATIN) [Concomitant]
  11. MOTRIN IB (IBUPROFEN) [Concomitant]
  12. LISINOPRIL (LISINOPRIL) [Concomitant]
  13. OXYBUTYNIN (OXYBUTYNIN) [Concomitant]
  14. METOPROLOL TARTRATE (METOPROLOL TARTRATE) [Concomitant]
  15. BACTRIM DS (BACTRIM) [Concomitant]
  16. ACYCLOVIR (ACICLOVIR) [Concomitant]
  17. PANTOPRAZOLE (PANTOPRAZOLE) [Concomitant]
  18. NPH (ALCOMYXINE) [Concomitant]
  19. HYDROCODONE (HYDROCODONE) [Concomitant]

REACTIONS (5)
  - Syncope [None]
  - Orthostatic hypotension [None]
  - Deep vein thrombosis [None]
  - Pulmonary embolism [None]
  - Clostridium difficile colitis [None]
